FAERS Safety Report 13523530 (Version 3)
Quarter: 2017Q4

REPORT INFORMATION
  Report Type: Spontaneous
  Country: US (occurrence: US)
  Receive Date: 20170508
  Receipt Date: 20171207
  Transmission Date: 20180320
  Serious: No
  Sender: FDA-Public Use
  Company Number: US-VIFOR (INTERNATIONAL) INC.-VIT-2017-04356

PATIENT
  Sex: Male
  Weight: 102.15 kg

DRUGS (20)
  1. OMEGA 3 [Concomitant]
     Active Substance: OMEGA-3 FATTY ACIDS
  2. VELTASSA [Suspect]
     Active Substance: PATIROMER
     Indication: HYPERKALAEMIA
     Dates: start: 20170317
  3. AMLODIPINE [Concomitant]
     Active Substance: AMLODIPINE BESYLATE
  4. SYMBICORT [Concomitant]
     Active Substance: BUDESONIDE\FORMOTEROL FUMARATE DIHYDRATE
  5. OMEPRAZOLE. [Concomitant]
     Active Substance: OMEPRAZOLE
  6. FUROSEMIDE. [Concomitant]
     Active Substance: FUROSEMIDE
  7. METOPROLOL. [Concomitant]
     Active Substance: METOPROLOL
  8. PROAIR HFA [Concomitant]
     Active Substance: ALBUTEROL SULFATE
  9. IPRATROPIUM BROMIDE/ALBUTAROL [Concomitant]
  10. ALLOPURINOL. [Concomitant]
     Active Substance: ALLOPURINOL
  11. DULOXETINE. [Concomitant]
     Active Substance: DULOXETINE
  12. PREDNISONE. [Concomitant]
     Active Substance: PREDNISONE
  13. FENOFIBRATE. [Concomitant]
     Active Substance: FENOFIBRATE
  14. ESOMEPRA [Concomitant]
     Active Substance: ESOMEPRAZOLE
  15. CALCITRIOL. [Concomitant]
     Active Substance: CALCITRIOL
  16. OXYCODONE/PARACETAMOL [Concomitant]
  17. FENTANYL. [Concomitant]
     Active Substance: FENTANYL
  18. MELOXICAM. [Concomitant]
     Active Substance: MELOXICAM
  19. SUCRALFATE. [Concomitant]
     Active Substance: SUCRALFATE
  20. GABAPENTIN. [Concomitant]
     Active Substance: GABAPENTIN

REACTIONS (5)
  - Vomiting [Recovered/Resolved]
  - Feeling abnormal [Recovered/Resolved]
  - Product quality issue [Recovered/Resolved]
  - Product taste abnormal [Recovered/Resolved]
  - Drug dose omission [Recovered/Resolved]

NARRATIVE: CASE EVENT DATE: 2017
